FAERS Safety Report 20340338 (Version 1)
Quarter: 2022Q1

REPORT INFORMATION
  Report Type: Spontaneous
  Country: US (occurrence: US)
  Receive Date: 20220117
  Receipt Date: 20220117
  Transmission Date: 20220423
  Serious: Yes (Other)
  Sender: FDA-Public Use
  Company Number: US-drreddys-LIT/USA/22/0145855

PATIENT
  Age: 4 Year
  Sex: Female

DRUGS (8)
  1. TACROLIMUS [Suspect]
     Active Substance: TACROLIMUS
     Indication: Graft versus host disease
  2. SIROLIMUS [Suspect]
     Active Substance: SIROLIMUS
     Indication: Graft versus host disease
  3. IBRUTINIB [Suspect]
     Active Substance: IBRUTINIB
     Indication: Graft versus host disease
  4. IBRUTINIB [Suspect]
     Active Substance: IBRUTINIB
     Dosage: DAYS 951 AND 980
  5. MELPHALAN HYDROCHLORIDE [Concomitant]
     Active Substance: MELPHALAN HYDROCHLORIDE
     Indication: Natural killer cell activity abnormal
  6. FLUDARABINE [Concomitant]
     Active Substance: FLUDARABINE PHOSPHATE
     Indication: Natural killer cell activity abnormal
  7. ALEMTUZUMAB [Concomitant]
     Active Substance: ALEMTUZUMAB
     Indication: Natural killer cell activity abnormal
  8. CELLCEPT [Concomitant]
     Active Substance: MYCOPHENOLATE MOFETIL
     Indication: Graft versus host disease

REACTIONS (1)
  - Drug ineffective [Unknown]
